FAERS Safety Report 6476114-1 (Version None)
Quarter: 2009Q4

REPORT INFORMATION
  Report Type: 
  Country: None (occurrence: None)
  Receive Date: 20091204
  Receipt Date: 20091125
  Transmission Date: 20100525
  Serious: Yes (Other)
  Sender: FDA-Public Use
  Company Number: JP-BRISTOL-MYERS SQUIBB COMPANY-14879159

PATIENT
  Age: 85 Year
  Sex: Male

DRUGS (1)
  1. MITOMYCIN [Suspect]
     Route: 047

REACTIONS (4)
  - CORNEAL TRANSPLANT [None]
  - INCORRECT DOSE ADMINISTERED [None]
  - KERATOMALACIA [None]
  - SCLEROMALACIA [None]
